FAERS Safety Report 7614161-4 (Version None)
Quarter: 2011Q3

REPORT INFORMATION
  Report Type: 
  Country: None (occurrence: None)
  Receive Date: 20110708
  Receipt Date: 20110624
  Transmission Date: 20111222
  Serious: Yes (Other)
  Sender: FDA-Public Use
  Company Number: AUR-APU-2011-01638

PATIENT
  Age: 58 Year
  Sex: Female

DRUGS (4)
  1. TERBINAFINE HYDROCHLORIDE [Suspect]
     Indication: FUNGAL INFECTION
     Dosage: 250 MG (250 MG, 1 IN 1 D), ORAL
     Route: 048
     Dates: start: 20110418, end: 20110428
  2. SINGULAIR [Concomitant]
  3. LISINOPRIL [Concomitant]
  4. ESTRADIOL [Concomitant]

REACTIONS (10)
  - VISION BLURRED [None]
  - DIARRHOEA [None]
  - DIZZINESS [None]
  - GAIT DISTURBANCE [None]
  - VIRAL INFECTION [None]
  - DYSGEUSIA [None]
  - EATING DISORDER [None]
  - BLOOD PRESSURE DECREASED [None]
  - SYNCOPE [None]
  - ASTHENIA [None]
